FAERS Safety Report 19244139 (Version 1)
Quarter: 2021Q2

REPORT INFORMATION
  Report Type: Spontaneous
  Country: US (occurrence: US)
  Receive Date: 20210512
  Receipt Date: 20210512
  Transmission Date: 20210717
  Serious: Yes (Hospitalization, Other)
  Sender: FDA-Public Use
  Company Number: US-AUROBINDO-AUR-APL-2021-018818

PATIENT
  Age: 10 Month
  Sex: Female

DRUGS (2)
  1. PROPOFOL. [Suspect]
     Active Substance: PROPOFOL
     Indication: SEDATION
     Dosage: UNK
     Route: 065
  2. VENLAFAXINE [Suspect]
     Active Substance: VENLAFAXINE HYDROCHLORIDE
     Indication: PRODUCT USED FOR UNKNOWN INDICATION
     Dosage: UNK
     Route: 065

REACTIONS (7)
  - Haemodynamic instability [Recovered/Resolved]
  - Electrocardiogram abnormal [Recovered/Resolved]
  - Ventricular tachycardia [Unknown]
  - Accidental overdose [Unknown]
  - Stress cardiomyopathy [Unknown]
  - Cardiogenic shock [Unknown]
  - Status epilepticus [Unknown]
